FAERS Safety Report 10875034 (Version 1)
Quarter: 2015Q1

REPORT INFORMATION
  Report Type: Spontaneous
  Country: US (occurrence: US)
  Receive Date: 20150227
  Receipt Date: 20150227
  Transmission Date: 20150721
  Serious: Yes (Life-Threatening)
  Sender: FDA-Public Use
  Company Number: US-CELGENE-USA-2015025167

PATIENT
  Age: 64 Year
  Sex: Female

DRUGS (2)
  1. THALOMID [Suspect]
     Active Substance: THALIDOMIDE
     Route: 048
     Dates: start: 20150203, end: 20150224
  2. THALOMID [Suspect]
     Active Substance: THALIDOMIDE
     Indication: PLASMA CELL MYELOMA
     Route: 048
     Dates: start: 201412

REACTIONS (2)
  - Plasma cell myeloma [Not Recovered/Not Resolved]
  - No therapeutic response [Not Recovered/Not Resolved]

NARRATIVE: CASE EVENT DATE: 20150224
